FAERS Safety Report 16324796 (Version 1)
Quarter: 2019Q2

REPORT INFORMATION
  Report Type: Spontaneous
  Country: PL (occurrence: PL)
  Receive Date: 20190517
  Receipt Date: 20190517
  Transmission Date: 20190711
  Serious: Yes (Other)
  Sender: FDA-Public Use
  Company Number: PHHY2019PL110495

PATIENT
  Age: 77 Year
  Sex: Male
  Weight: 45 kg

DRUGS (3)
  1. DIAPREL [Suspect]
     Active Substance: GLICLAZIDE
     Indication: TYPE 2 DIABETES MELLITUS
     Dosage: 30 MG, QD
     Route: 048
  2. DIAPREL [Suspect]
     Active Substance: GLICLAZIDE
     Dosage: 45 MG, UNK (15 MG IN THE MORNING AND 30 MG IN THE EVENING)
     Route: 048
  3. METFORMIN [Suspect]
     Active Substance: METFORMIN HYDROCHLORIDE
     Indication: TYPE 2 DIABETES MELLITUS
     Dosage: 500 MG, PRN
     Route: 065

REACTIONS (6)
  - Hypercholesterolaemia [Not Recovered/Not Resolved]
  - Product use issue [Recovered/Resolved]
  - Hypertension [Recovered/Resolved]
  - Blood glucose increased [Recovering/Resolving]
  - Atrial enlargement [Not Recovered/Not Resolved]
  - Irritable bowel syndrome [Not Recovered/Not Resolved]

NARRATIVE: CASE EVENT DATE: 2009
